FAERS Safety Report 9772850 (Version 2)
Quarter: 2013Q4

REPORT INFORMATION
  Report Type: Spontaneous
  Country: US (occurrence: US)
  Receive Date: 20131219
  Receipt Date: 20131220
  Transmission Date: 20140711
  Serious: Yes (Other)
  Sender: FDA-Public Use
  Company Number: US-PFIZER INC-2013362830

PATIENT
  Age: 65 Year
  Sex: Female
  Weight: 69.4 kg

DRUGS (3)
  1. LYRICA [Suspect]
     Indication: FIBROMYALGIA
     Dosage: 150 MG (2 CAPSULES OF 75MG), 2X/DAY
     Route: 048
     Dates: start: 2012, end: 201312
  2. LABETALOL [Concomitant]
     Indication: HYPERTENSION
     Dosage: 600 MG (2 TABLETS OF 300MG), 2X/DAY
  3. ZETIA [Concomitant]
     Indication: BLOOD CHOLESTEROL INCREASED
     Dosage: 10 MG, 1X/DAY

REACTIONS (5)
  - Cardiac flutter [Recovering/Resolving]
  - Aphagia [Unknown]
  - Malaise [Recovering/Resolving]
  - Abdominal discomfort [Unknown]
  - Weight decreased [Unknown]
